FAERS Safety Report 7154037-2 (Version None)
Quarter: 2010Q4

REPORT INFORMATION
  Report Type: 
  Country: None (occurrence: None)
  Receive Date: 20101213
  Receipt Date: 20101202
  Transmission Date: 20110411
  Serious: Yes (Hospitalization)
  Sender: FDA-Public Use
  Company Number: ES-ELI_LILLY_AND_COMPANY-ES201012000756

PATIENT
  Sex: Male
  Weight: 83 kg

DRUGS (3)
  1. FORTEO [Suspect]
     Indication: TIBIA FRACTURE
     Dosage: 20 UG, DAILY (1/D)
     Route: 058
     Dates: start: 20100921, end: 20101102
  2. AMILORIDE HCL AND HYDROCHLOROTHIAZIDE [Concomitant]
     Indication: HYPERTENSION
     Dosage: UNK, DAILY (1/D)
     Route: 048
  3. HIBOR [Concomitant]
     Indication: THROMBOSIS
     Dosage: UNK, DAILY (1/D)
     Route: 058
     Dates: end: 20101102

REACTIONS (3)
  - BLOOD URIC ACID INCREASED [None]
  - OFF LABEL USE [None]
  - THROMBOSIS [None]
